FAERS Safety Report 15632672 (Version 3)
Quarter: 2021Q3

REPORT INFORMATION
  Report Type: Spontaneous
  Country: US (occurrence: US)
  Receive Date: 20181119
  Receipt Date: 20210726
  Transmission Date: 20211014
  Serious: No
  Sender: FDA-Public Use
  Company Number: US-PFIZER INC-2018475187

PATIENT
  Age: 56 Year
  Sex: Male

DRUGS (2)
  1. BOSULIF [Suspect]
     Active Substance: BOSUTINIB MONOHYDRATE
     Indication: CHRONIC MYELOID LEUKAEMIA RECURRENT
     Dosage: 400 MG, 1X/DAY
     Dates: start: 20181101
  2. BOSULIF [Suspect]
     Active Substance: BOSUTINIB MONOHYDRATE
     Dosage: 400 MG
     Dates: start: 20210424

REACTIONS (7)
  - Urticaria [Recovered/Resolved]
  - Dizziness [Unknown]
  - Rash [Unknown]
  - Diarrhoea [Unknown]
  - Nasal congestion [Unknown]
  - Nausea [Unknown]
  - Eye irritation [Unknown]
